FAERS Safety Report 7753333 (Version 7)
Quarter: 2012Q4

REPORT INFORMATION
  Report Type: Report from Study
  Country: TW (occurrence: TW)
  Receive Date: 20110110
  Receipt Date: 20121130
  Transmission Date: 20130627
  Serious: Yes (Death, Life-Threatening, Hospitalization)
  Sender: FDA-Public Use
  Company Number: TW-BAYER-2010-005187

PATIENT
  Age: 56 Year
  Sex: Male
  Weight: 67 kg

DRUGS (20)
  1. NEXAVAR [Suspect]
     Indication: CARCINOMA HEPATOCELLULAR
     Dosage: 400 mg, BID
     Route: 048
     Dates: start: 20101105, end: 20101125
  2. NEXAVAR [Suspect]
     Indication: CARCINOMA HEPATOCELLULAR
     Dosage: 400 mg, QD
     Route: 048
     Dates: start: 20101126, end: 20101215
  3. BROWN MIXTURE [Concomitant]
     Indication: COUGH
     Dosage: 40 ml, QID
     Route: 048
     Dates: start: 20101107, end: 20101111
  4. BROWN MIXTURE [Concomitant]
     Indication: COUGH
     Dosage: 60 ml, QID
     Route: 048
     Dates: start: 20101112, end: 20101116
  5. BROWN MIXTURE [Concomitant]
     Indication: COUGH
     Dosage: 60 ml, QID
     Route: 048
     Dates: start: 20101126, end: 20101130
  6. BROWN MIXTURE [Concomitant]
     Indication: COUGH
     Dosage: 60 ml, QID
     Route: 048
     Dates: start: 20101203, end: 20101207
  7. AMLODIPINE [Concomitant]
     Indication: HYPERTENSION
     Dosage: 2.5 mg, QD
     Route: 048
     Dates: start: 20101105, end: 20101111
  8. AMLODIPINE [Concomitant]
     Indication: HYPERTENSION
     Dosage: 5 mg, QD
     Route: 048
     Dates: start: 20101112, end: 20101216
  9. BARACLUDE [Concomitant]
     Indication: CHRONIC HEPATITIS B
     Dosage: Daily dose .5 mg
     Route: 048
     Dates: start: 20101126, end: 20101216
  10. SODIUM BICARBONATE [Concomitant]
     Indication: PROPHYLAXIS
     Dosage: 80 ml, PRN
     Route: 042
     Dates: start: 20101216, end: 20101216
  11. SODIUM BICARBONATE [Concomitant]
     Indication: PROPHYLAXIS
     Dosage: 120 ml STAT
     Route: 042
     Dates: start: 20101217, end: 20101217
  12. MORPHINE HYDROCHLORIDE [Concomitant]
     Indication: ABDOMINAL PAIN
     Dosage: 15 mg, STAT
     Route: 030
     Dates: start: 20101217, end: 20101217
  13. IOVERSOL [Concomitant]
     Indication: SCAN WITH CONTRAST
     Dosage: 100 ml, STAT
     Route: 042
     Dates: start: 20101214, end: 20101214
  14. IOVERSOL [Concomitant]
     Indication: SCAN WITH CONTRAST
     Dosage: 100 ml, STAT
     Route: 042
     Dates: start: 20101102, end: 20101102
  15. BUMETANIDE [Concomitant]
     Indication: LEG EDEMA
     Dosage: 1 mg, QD
     Route: 048
     Dates: start: 20101210, end: 20101216
  16. CIMETIDINE [Concomitant]
     Indication: ABDOMINAL FULLNESS
     Dosage: 600 mg, TID
     Route: 048
     Dates: start: 20101210, end: 20101216
  17. CEFTRIAXON SANDOZ [Concomitant]
     Indication: INFECTION PROPHYLAXIS
     Dosage: 1000 mg, STAT
     Route: 042
     Dates: start: 20101216, end: 20101216
  18. CEFTRIAXON SANDOZ [Concomitant]
     Indication: INFECTION PROPHYLAXIS
     Dosage: 1000 mg, Q 12H
     Route: 042
     Dates: start: 20101216, end: 20101217
  19. DEXTROMETHORPHAN [Concomitant]
     Indication: ACUTE BRONCHITIS
     Dosage: 60 mg, TID
     Route: 048
     Dates: start: 20101216, end: 20101217
  20. LEVOPHED [Concomitant]
     Indication: PROPHYLAXIS NOS
     Dosage: 4 amp STAT
     Route: 042
     Dates: start: 20101217, end: 20101217

REACTIONS (5)
  - Hepatorenal syndrome [Fatal]
  - Alanine aminotransferase increased [Not Recovered/Not Resolved]
  - Aspartate aminotransferase increased [Not Recovered/Not Resolved]
  - Abdominal pain [Not Recovered/Not Resolved]
  - Nausea [Not Recovered/Not Resolved]
